FAERS Safety Report 13858383 (Version 1)
Quarter: 2017Q3

REPORT INFORMATION
  Report Type: Spontaneous
  Country: NO (occurrence: NO)
  Receive Date: 20170811
  Receipt Date: 20170811
  Transmission Date: 20171127
  Serious: Yes (Hospitalization)
  Sender: FDA-Public Use
  Company Number: NO-B.I. PHARMACEUTICALS,INC./RIDGEFIELD-2017-21-000028

PATIENT
  Age: 62 Year
  Sex: Male

DRUGS (4)
  1. METFORMIN [Concomitant]
     Active Substance: METFORMIN HYDROCHLORIDE
     Indication: TYPE 2 DIABETES MELLITUS
     Route: 048
     Dates: start: 20161116
  2. VICTOZA [Concomitant]
     Active Substance: LIRAGLUTIDE
     Indication: TYPE 2 DIABETES MELLITUS
     Route: 058
     Dates: start: 20161116
  3. JARDIANCE [Suspect]
     Active Substance: EMPAGLIFLOZIN
     Indication: TYPE 2 DIABETES MELLITUS
     Route: 048
     Dates: start: 20161116, end: 20170715
  4. CANDESARTAN. [Concomitant]
     Active Substance: CANDESARTAN
     Indication: HYPERTENSION
     Route: 048
     Dates: start: 20161116

REACTIONS (2)
  - Base excess decreased [Recovering/Resolving]
  - Diabetic ketoacidosis [Recovering/Resolving]

NARRATIVE: CASE EVENT DATE: 20170715
